FAERS Safety Report 9247187 (Version 1)
Quarter: 2013Q2

REPORT INFORMATION
  Report Type: Spontaneous
  Country: US (occurrence: US)
  Receive Date: 20130423
  Receipt Date: 20130423
  Transmission Date: 20140414
  Serious: No
  Sender: FDA-Public Use
  Company Number: US-BIOGENIDEC-2013BI035564

PATIENT
  Sex: Female

DRUGS (1)
  1. TYSABRI [Suspect]
     Indication: MULTIPLE SCLEROSIS
     Route: 042
     Dates: start: 20120831

REACTIONS (7)
  - Multiple allergies [Unknown]
  - Cognitive disorder [Unknown]
  - Loss of control of legs [Unknown]
  - Stress [Unknown]
  - Asthenia [Unknown]
  - Fatigue [Unknown]
  - Cystitis [Unknown]
